FAERS Safety Report 23150347 (Version 2)
Quarter: 2023Q4

REPORT INFORMATION
  Report Type: Spontaneous
  Country: DE (occurrence: DE)
  Receive Date: 20231106
  Receipt Date: 20231108
  Transmission Date: 20240110
  Serious: Yes (Other)
  Sender: FDA-Public Use
  Company Number: DE-002147023-NVSC2023DE232453

PATIENT

DRUGS (1)
  1. RUXOLITINIB [Suspect]
     Active Substance: RUXOLITINIB
     Indication: Polycythaemia vera
     Dosage: 30 MG, (20 MG - 0 - 10 MG)
     Route: 065
     Dates: start: 2018

REACTIONS (13)
  - Balance disorder [Not Recovered/Not Resolved]
  - Fall [Recovered/Resolved]
  - Blood cholesterol increased [Unknown]
  - Liver function test increased [Unknown]
  - Blood triglycerides increased [Unknown]
  - Incorrect dose administered [Not Recovered/Not Resolved]
  - Arterial occlusive disease [Unknown]
  - Rib fracture [Recovered/Resolved]
  - Sleep deficit [Unknown]
  - Hyperhidrosis [Not Recovered/Not Resolved]
  - Cerebral atrophy [Unknown]
  - Pruritus [Unknown]
  - Aphasia [Unknown]

NARRATIVE: CASE EVENT DATE: 20220101
